FAERS Safety Report 4655533-X (Version None)
Quarter: 2005Q2

REPORT INFORMATION
  Report Type: 
  Country: None (occurrence: None)
  Receive Date: 20050505
  Receipt Date: 20050425
  Transmission Date: 20051028
  Serious: Yes (Other)
  Sender: FDA-Public Use
  Company Number: 2005062151

PATIENT
  Age: 68 Year
  Sex: Female
  Weight: 74.8435 kg

DRUGS (3)
  1. CELEBREX [Suspect]
     Indication: ARTHRITIS
     Dosage: 400 MG (200 MG, 2 IN 1 D)
     Dates: start: 20020101, end: 20020101
  2. POTASSIUM ACETATE [Concomitant]
  3. ALLEGRA-D [Concomitant]

REACTIONS (9)
  - BLOOD POTASSIUM DECREASED [None]
  - BLOOD PRESSURE INCREASED [None]
  - BODY HEIGHT DECREASED [None]
  - DRUG INEFFECTIVE [None]
  - HIP ARTHROPLASTY [None]
  - NERVOUS SYSTEM DISORDER [None]
  - POST PROCEDURAL COMPLICATION [None]
  - POST PROCEDURAL PAIN [None]
  - PROCEDURAL COMPLICATION [None]
